FAERS Safety Report 6712720-4 (Version None)
Quarter: 2010Q2

REPORT INFORMATION
  Report Type: 
  Country: None (occurrence: None)
  Receive Date: 20100505
  Receipt Date: 20100505
  Transmission Date: 20101027
  Serious: No
  Sender: FDA-Public Use
  Company Number: None

PATIENT
  Age: 47 Year
  Sex: Female
  Weight: 70.3075 kg

DRUGS (1)
  1. NICOTROL [Suspect]
     Indication: SMOKING CESSATION THERAPY
     Dosage: 10MG CARTRIDGE -4 MG DELIVERED UP TO 16 QD OTHER
     Route: 050
     Dates: start: 20100315, end: 20100503

REACTIONS (1)
  - PRODUCT QUALITY ISSUE [None]
